FAERS Safety Report 11214166 (Version 1)
Quarter: 2015Q2

REPORT INFORMATION
  Report Type: Other
  Country: US (occurrence: US)
  Receive Date: 20150623
  Receipt Date: 20150623
  Transmission Date: 20150821
  Serious: No
  Sender: FDA-Public Use
  Company Number: US-BRECKENRIDGE PHARMACEUTICAL, INC.-1040148

PATIENT
  Age: 72 Year
  Sex: Female
  Weight: 64.09 kg

DRUGS (1)
  1. DULOXETINE DELAYED-RELEASE [Suspect]
     Active Substance: DULOXETINE
     Indication: ANTIDEPRESSANT DRUG LEVEL
     Route: 048

REACTIONS (2)
  - Product substitution issue [None]
  - Drug ineffective [Recovering/Resolving]

NARRATIVE: CASE EVENT DATE: 20140202
